FAERS Safety Report 8403213-7 (Version None)
Quarter: 2012Q2

REPORT INFORMATION
  Report Type: 
  Country: None (occurrence: None)
  Receive Date: 20120601
  Receipt Date: 20120524
  Transmission Date: 20120825
  Serious: Yes (Death)
  Sender: FDA-Public Use
  Company Number: FR-MERCK-1205FRA00109

PATIENT
  Sex: Male

DRUGS (1)
  1. CANCIDAS [Suspect]
     Route: 051

REACTIONS (2)
  - SEPTIC SHOCK [None]
  - DEATH [None]
